FAERS Safety Report 4575967-1 (Version None)
Quarter: 2005Q1

REPORT INFORMATION
  Report Type: 
  Country: None (occurrence: None)
  Receive Date: 20050209
  Receipt Date: 20050128
  Transmission Date: 20050727
  Serious: Yes (Hospitalization, Other)
  Sender: FDA-Public Use
  Company Number: BE-BRISTOL-MYERS SQUIBB COMPANY-12841250

PATIENT
  Age: 41 Year
  Sex: Female

DRUGS (6)
  1. ATAZANAVIR [Suspect]
     Indication: HIV INFECTION
     Route: 048
     Dates: start: 20030203
  2. COMBIVIR [Suspect]
     Indication: HIV INFECTION
     Dosage: 300 MG/ 150 MG TWICE DAILY
  3. ROCEPHIN [Concomitant]
     Route: 042
  4. ATROVENT [Concomitant]
  5. LASIX [Concomitant]
     Dates: start: 20050124, end: 20050124
  6. ZESTRIL [Concomitant]

REACTIONS (1)
  - CARDIOMYOPATHY [None]
